FAERS Safety Report 8966582 (Version 1)
Quarter: 2012Q4

REPORT INFORMATION
  Report Type: 
  Country: NL (occurrence: NL)
  Receive Date: 20121214
  Receipt Date: 20121214
  Transmission Date: 20130627
  Serious: Yes (Other)
  Sender: FDA-Public Use
  Company Number: PHHY2012NL114245

PATIENT
  Sex: Female

DRUGS (9)
  1. ACLASTA [Suspect]
     Indication: OSTEOPOROSIS
     Dosage: 5 mg, UNK
     Route: 042
     Dates: start: 20111123
  2. ACLASTA [Suspect]
     Dosage: 5 UNK, UNK
     Route: 042
     Dates: start: 20121122
  3. CARBASALAATCALCIUM SANDOZ [Concomitant]
     Dosage: 100 mg, UNK
  4. OMEPRAZOLE [Concomitant]
     Dosage: 40 mg, UNK
  5. NIFEDIPINE [Concomitant]
     Dosage: 30 mg, UNK
  6. IMIPRAMINE [Concomitant]
     Dosage: 10 mg, UNK
  7. FENTANYL [Concomitant]
     Dosage: 12 ug, UNK
  8. PRAMIPEXOL +PHARMA [Concomitant]
     Dosage: 125 mg, UNK
  9. HALDOL [Concomitant]
     Dosage: 2 mg, UNK

REACTIONS (4)
  - Transient ischaemic attack [Recovered/Resolved]
  - Muscle spasms [Unknown]
  - Memory impairment [Unknown]
  - Aphasia [Unknown]
